FAERS Safety Report 4309663-2 (Version None)
Quarter: 2004Q1

REPORT INFORMATION
  Report Type: 
  Country: None (occurrence: None)
  Receive Date: 20040301
  Receipt Date: 20040210
  Transmission Date: 20041129
  Serious: Yes (Hospitalization)
  Sender: FDA-Public Use
  Company Number: CA-SHR-03-018952

PATIENT
  Age: 54 Year
  Sex: Female

DRUGS (5)
  1. BETASERON [Suspect]
     Indication: MULTIPLE SCLEROSIS
     Dosage: 8 MIU,  EVERY 2D, SUBCUTANEOUS
     Route: 058
     Dates: start: 20030212
  2. PENICILLIN [Suspect]
     Indication: CYSTITIS
  3. NEURONTIN [Concomitant]
  4. CELEBREX (CELEBREX) [Concomitant]
  5. VENTOLIN [Concomitant]

REACTIONS (9)
  - CYSTITIS [None]
  - DECREASED APPETITE [None]
  - DRUG HYPERSENSITIVITY [None]
  - FALL [None]
  - RIB FRACTURE [None]
  - URINARY RETENTION [None]
  - URTICARIA [None]
  - WEIGHT DECREASED [None]
  - WHITE BLOOD CELL COUNT DECREASED [None]
